FAERS Safety Report 13122768 (Version 1)
Quarter: 2017Q1

REPORT INFORMATION
  Report Type: Spontaneous
  Country: JP (occurrence: JP)
  Receive Date: 20170117
  Receipt Date: 20170117
  Transmission Date: 20170428
  Serious: Yes (Other)
  Sender: FDA-Public Use
  Company Number: JP-MYLANLABS-2017M1002437

PATIENT

DRUGS (7)
  1. GIMERACIL W/OTERACIL POTASSIUM/TEGAFUR [Suspect]
     Active Substance: GIMERACIL\OTERACIL\TEGAFUR
     Dosage: 100MG/BODY/DAY, TWICE A DAY, AFTER 4 CYCLES, DOSE WAS LOWERED
     Route: 065
     Dates: start: 200902
  2. GIMERACIL W/OTERACIL POTASSIUM/TEGAFUR [Suspect]
     Active Substance: GIMERACIL\OTERACIL\TEGAFUR
     Dosage: 80 MG/BODY/DAY TWICE A DAY, 4W ON, 2W OFF. 28 CYCLES ADMINISTERED, LATER DOSE FREQUENCY CHANGED
     Route: 065
     Dates: start: 200902
  3. GIMERACIL W/OTERACIL POTASSIUM/TEGAFUR [Suspect]
     Active Substance: GIMERACIL\OTERACIL\TEGAFUR
     Dosage: 80MG/BODY/DAY, ADMINISTERED EVERY OTHER DAY
     Route: 065
     Dates: start: 200902
  4. PACLITAXEL. [Suspect]
     Active Substance: PACLITAXEL
     Indication: GASTRIC CANCER STAGE IV
     Dosage: 160 MG/BODY/DAY
     Route: 065
     Dates: start: 200902
  5. GIMERACIL W/OTERACIL POTASSIUM/TEGAFUR [Suspect]
     Active Substance: GIMERACIL\OTERACIL\TEGAFUR
     Indication: GASTRIC CANCER STAGE IV
     Dosage: 120MG/BODY/DAY TWICE A DAY 2W ON, 1W OFF,
     Route: 065
     Dates: start: 200902
  6. GIMERACIL W/OTERACIL POTASSIUM/TEGAFUR [Suspect]
     Active Substance: GIMERACIL\OTERACIL\TEGAFUR
     Dosage: 80MG/BODY/DAY TWICE A DAY, 16 CYCLES WERE ADMINISTERED AT THIS DOSE, DOSE WAS CHANGED LATER
     Route: 065
     Dates: start: 200902
  7. GIMERACIL W/OTERACIL POTASSIUM/TEGAFUR [Suspect]
     Active Substance: GIMERACIL\OTERACIL\TEGAFUR
     Dosage: 120MG/BODY/DAY,TWICE A DAY, 2W ON, 2W OFF, FOR 10 CYCLES, LATER DOSE WAS REDUCED
     Route: 065
     Dates: start: 200902

REACTIONS (6)
  - Nausea [Recovering/Resolving]
  - Diarrhoea [Recovering/Resolving]
  - Stomatitis [Unknown]
  - Decreased appetite [Recovering/Resolving]
  - Hypoaesthesia [Recovering/Resolving]
  - Dysgeusia [Unknown]
